FAERS Safety Report 25952466 (Version 1)
Quarter: 2025Q4

REPORT INFORMATION
  Report Type: Spontaneous
  Country: CN (occurrence: CN)
  Receive Date: 20251023
  Receipt Date: 20251023
  Transmission Date: 20260117
  Serious: Yes (Other)
  Sender: Teyro Labs
  Company Number: CN-TEYRO-2025-TY-000840

PATIENT

DRUGS (3)
  1. CARBOPLATIN [Suspect]
     Active Substance: CARBOPLATIN
     Indication: Small cell lung cancer extensive stage
     Dosage: AUC 5 TO 6 MG/ML PER MIN, ON DAY 1 OF EACH CYCLE
     Route: 065
  2. ETOPOSIDE [Suspect]
     Active Substance: ETOPOSIDE
     Indication: Small cell lung cancer extensive stage
     Dosage: 80 TO 100 MG/M2 OF BODY SURFACE AREA, ON DAY 1 TO 3 OF EACH CYCLE
     Route: 065
  3. ENVAFOLIMAB [Suspect]
     Active Substance: ENVAFOLIMAB
     Indication: Small cell lung cancer extensive stage
     Dosage: Q3W DAY 3 POST CHEMOTHERAPY OF EACH CYCLE
     Route: 065

REACTIONS (2)
  - Neoplasm progression [Unknown]
  - Off label use [Unknown]
